FAERS Safety Report 9260987 (Version 1)
Quarter: 2013Q2

REPORT INFORMATION
  Report Type: Spontaneous
  Country: US (occurrence: US)
  Receive Date: 20130429
  Receipt Date: 20130429
  Transmission Date: 20140414
  Serious: No
  Sender: FDA-Public Use
  Company Number: US-AMGEN-USASP2011013642

PATIENT
  Sex: Female

DRUGS (5)
  1. SENSIPAR [Suspect]
     Indication: HYPERPARATHYROIDISM PRIMARY
     Dosage: 60 MG, QD
     Dates: start: 201011
  2. SIMVASTATIN [Concomitant]
     Dosage: UNK
  3. ALTACE [Concomitant]
     Dosage: UNK
  4. PROZAC                             /00724401/ [Concomitant]
     Dosage: UNK
  5. NORVASC [Concomitant]
     Dosage: UNK

REACTIONS (7)
  - Incorrect dose administered [Unknown]
  - Wrong technique in drug usage process [Unknown]
  - Muscle spasms [Not Recovered/Not Resolved]
  - Paraesthesia [Not Recovered/Not Resolved]
  - Paraesthesia oral [Not Recovered/Not Resolved]
  - Blood calcium increased [Unknown]
  - Diarrhoea [Not Recovered/Not Resolved]
